FAERS Safety Report 11751964 (Version 1)
Quarter: 2015Q4

REPORT INFORMATION
  Report Type: Spontaneous
  Country: ES (occurrence: ES)
  Receive Date: 20151118
  Receipt Date: 20151118
  Transmission Date: 20160304
  Serious: No
  Sender: FDA-Public Use
  Company Number: ES-ALK-ABELLO A/S-1044395

PATIENT
  Age: 35 Year
  Sex: Female

DRUGS (1)
  1. EASTERN YELLOWJACKET VENOM PROTEIN [Suspect]
     Active Substance: VESPULA MACULIFRONS VENOM PROTEIN
     Indication: ALLERGY TO STING
     Route: 058
     Dates: start: 20150325

REACTIONS (6)
  - Erythema [Unknown]
  - Enlarged uvula [Unknown]
  - Feeling hot [Unknown]
  - Localised oedema [Unknown]
  - Sensation of foreign body [Unknown]
  - Pruritus [Unknown]

NARRATIVE: CASE EVENT DATE: 20150325
